FAERS Safety Report 14238175 (Version 1)
Quarter: 2017Q4

REPORT INFORMATION
  Report Type: Spontaneous
  Country: US (occurrence: US)
  Receive Date: 20171130
  Receipt Date: 20171130
  Transmission Date: 20180321
  Serious: Yes (Hospitalization)
  Sender: FDA-Public Use
  Company Number: US-ACCORD-061494

PATIENT
  Age: 58 Year
  Sex: Male

DRUGS (1)
  1. CLONAZEPAM ACCORD [Suspect]
     Active Substance: CLONAZEPAM
     Indication: ANXIETY
     Dosage: FREQUENCY: ONCE DAILY AT BEDTIME??STRENGTH: 1 MG
     Route: 048
     Dates: start: 201512

REACTIONS (1)
  - Seizure [Unknown]
